FAERS Safety Report 21039866 (Version 1)
Quarter: 2022Q3

REPORT INFORMATION
  Report Type: Other
  Country: GB (occurrence: None)
  Receive Date: 20220704
  Receipt Date: 20220704
  Transmission Date: 20221027
  Serious: Yes (Hospitalization)
  Sender: FDA-Public Use
  Company Number: GB-ROCHE-3131367

PATIENT

DRUGS (1)
  1. RITUXIMAB [Suspect]
     Active Substance: RITUXIMAB
     Indication: Anti-neutrophil cytoplasmic antibody positive vasculitis
     Dosage: SDR: 2 DOSES OF 1G RITUXIMAB FORTNIGHTLY FOLLOWED BY SIX MONTHLY 1G DOSES FOR 2 YEARS
     Route: 065

REACTIONS (1)
  - Infection [Unknown]
